FAERS Safety Report 7324464-9 (Version None)
Quarter: 2011Q1

REPORT INFORMATION
  Report Type: 
  Country: None (occurrence: None)
  Receive Date: 20110203
  Receipt Date: 20100217
  Transmission Date: 20110831
  Serious: Yes (Hospitalization)
  Sender: FDA-Public Use
  Company Number: 007250

PATIENT

DRUGS (5)
  1. KEPPRA [Suspect]
     Indication: CONVULSION
     Dosage: INTRAVENOUS
     Route: 042
  2. ACETAMINOPHEN [Suspect]
  3. KEPPRA [Suspect]
     Indication: CONVULSION
     Dosage: 500 MG TID
  4. LORAZEPAM [Concomitant]
  5. PHENYTOIN [Suspect]

REACTIONS (2)
  - PARTIAL SEIZURES [None]
  - GRAND MAL CONVULSION [None]
